FAERS Safety Report 4693660-1 (Version None)
Quarter: 2005Q2

REPORT INFORMATION
  Report Type: 
  Country: None (occurrence: None)
  Receive Date: 20050617
  Receipt Date: 20050513
  Transmission Date: 20051028
  Serious: Yes (Hospitalization)
  Sender: FDA-Public Use
  Company Number: 2005UW07487

PATIENT
  Age: 35 Year
  Sex: Female
  Weight: 125.9 kg

DRUGS (24)
  1. SEROQUEL [Suspect]
     Indication: BIPOLAR I DISORDER
     Route: 048
     Dates: start: 20030505, end: 20040401
  2. SEROQUEL [Interacting]
     Indication: SLEEP DISORDER
     Route: 048
     Dates: start: 20030505, end: 20040401
  3. SEROQUEL [Interacting]
     Route: 048
     Dates: start: 20041101, end: 20050201
  4. SEROQUEL [Interacting]
     Route: 048
     Dates: start: 20041101, end: 20050201
  5. SEROQUEL [Interacting]
     Dosage: 50 MG AM, 50 MG @ 4PM, 600 MG AT NIGHT
     Route: 048
  6. SEROQUEL [Interacting]
     Dosage: 50 MG AM, 50 MG @ 4PM, 600 MG AT NIGHT
     Route: 048
  7. COUMADIN [Interacting]
     Indication: PULMONARY HYPERTENSION
     Route: 048
  8. DIFLUCAN [Concomitant]
     Dates: end: 20050223
  9. TRACLEER [Concomitant]
  10. NOVOLOG INSULIN 70/30 [Concomitant]
     Indication: DIABETES MELLITUS INSULIN-DEPENDENT
     Dosage: 30 U IN AM + 20 U AT NIGHT
     Route: 058
  11. PREDNISONE TAB [Concomitant]
  12. LEVBID [Concomitant]
  13. SPIRONOLACTONE [Concomitant]
  14. MICRO-K [Concomitant]
  15. IRON [Concomitant]
  16. LEXAPRO [Concomitant]
  17. TOPAMAX [Concomitant]
  18. PRILOSEC [Concomitant]
  19. FLONASE [Concomitant]
     Route: 045
  20. ZYRTEC [Concomitant]
  21. ADVAIR DISKUS 100/50 [Concomitant]
     Route: 055
  22. SINGULAIR [Concomitant]
  23. ALBUTEROL [Concomitant]
     Route: 055
  24. PERCOCET [Concomitant]

REACTIONS (3)
  - DRUG INTERACTION [None]
  - MALABSORPTION [None]
  - PROTHROMBIN TIME PROLONGED [None]
